FAERS Safety Report 24728724 (Version 1)
Quarter: 2024Q4

REPORT INFORMATION
  Report Type: Spontaneous
  Country: JP (occurrence: JP)
  Receive Date: 20241212
  Receipt Date: 20241212
  Transmission Date: 20250115
  Serious: Yes (Other)
  Sender: JOHNSON AND JOHNSON
  Company Number: JP-NShinyaku-EVA20200174801001307081

PATIENT

DRUGS (1)
  1. SELEXIPAG [Suspect]
     Active Substance: SELEXIPAG
     Indication: Pulmonary arterial hypertension
     Dosage: UNKNOWN
     Route: 048

REACTIONS (3)
  - Ascites [Unknown]
  - Diarrhoea [Unknown]
  - Decreased appetite [Unknown]
